FAERS Safety Report 10676587 (Version 1)
Quarter: 2014Q4

REPORT INFORMATION
  Report Type: Spontaneous
  Country: None (occurrence: None)
  Receive Date: 20141223
  Receipt Date: 20141223
  Transmission Date: 20150529
  Serious: Yes (Life-Threatening, Disabling, Other)
  Sender: FDA-Public Use
  Company Number: None

PATIENT
  Age: 26 Year
  Sex: Male
  Weight: 83.92 kg

DRUGS (1)
  1. PROPECIA [Suspect]
     Active Substance: FINASTERIDE
     Indication: ANDROGENETIC ALOPECIA
     Dosage: 1

REACTIONS (7)
  - Weight increased [None]
  - Testicular atrophy [None]
  - Semen volume decreased [None]
  - Erectile dysfunction [None]
  - Gynaecomastia [None]
  - Blood testosterone decreased [None]
  - Depression [None]

NARRATIVE: CASE EVENT DATE: 20141222
